FAERS Safety Report 6134241-2 (Version None)
Quarter: 2009Q1

REPORT INFORMATION
  Report Type: 
  Country: None (occurrence: None)
  Receive Date: 20090325
  Receipt Date: 20090309
  Transmission Date: 20090719
  Serious: Yes (Other)
  Sender: FDA-Public Use
  Company Number: 2009030047

PATIENT
  Age: 73 Year
  Sex: Male

DRUGS (5)
  1. SUTRIL (TORASEMIDE) [Suspect]
     Indication: HYPERTENSION
     Dosage: (5 MG), ORAL
     Route: 048
     Dates: start: 20040101
  2. CARDURAN NEO (DOXAZOSIN) [Suspect]
     Indication: HYPERTENSION
     Dosage: (8 MG), ORAL
     Route: 048
     Dates: start: 20040101, end: 20081201
  3. OPENVAS (OLMESARTAN MEDOXOMIL/SILDENAFIL) [Suspect]
     Indication: HYPERTENSION
     Dosage: (40 MG), ORAL
     Route: 048
     Dates: start: 20040101
  4. RASILEZ (ALISKIREN) [Suspect]
     Indication: HYPERTENSION
     Dosage: (300 MG), ORAL
     Route: 048
     Dates: start: 20081117, end: 20081231
  5. ASPIRIN [Concomitant]

REACTIONS (2)
  - HYPERTENSION [None]
  - PERIPHERAL COLDNESS [None]
